FAERS Safety Report 8540592-4 (Version None)
Quarter: 2012Q3

REPORT INFORMATION
  Report Type: 
  Country: None (occurrence: None)
  Receive Date: 20120726
  Receipt Date: 20120710
  Transmission Date: 20120928
  Serious: Yes (Other)
  Sender: FDA-Public Use
  Company Number: CA-FRI-1000037390

PATIENT
  Sex: Female
  Weight: 90 kg

DRUGS (4)
  1. ROFLUMILAST [Suspect]
     Indication: CHRONIC OBSTRUCTIVE PULMONARY DISEASE
     Dosage: 500 MCG
     Dates: start: 20120116, end: 20120310
  2. CELEXA [Concomitant]
  3. ASPIRIN [Concomitant]
  4. CARDIDEM CD [Concomitant]

REACTIONS (4)
  - IRRITABILITY [None]
  - DEPRESSION [None]
  - TREMOR [None]
  - SUICIDAL IDEATION [None]
